FAERS Safety Report 9727130 (Version 1)
Quarter: 2013Q4

REPORT INFORMATION
  Report Type: Report from Study
  Country: MX (occurrence: MX)
  Receive Date: 20131203
  Receipt Date: 20131203
  Transmission Date: 20140711
  Serious: Yes (Other)
  Sender: FDA-Public Use
  Company Number: PHHY2013MX140548

PATIENT
  Age: 78 Year
  Sex: Male

DRUGS (6)
  1. EXELON PATCH [Suspect]
     Indication: PARKINSON^S DISEASE
     Dosage: 9.5 MG, DAILY (PATCH 10 CM2)
     Route: 062
     Dates: start: 201111
  2. EXELON PATCH [Suspect]
     Indication: OFF LABEL USE
     Dosage: 9.5 MG, QOD (PATCH 10 CM2)
     Route: 062
     Dates: start: 201211
  3. ACARBOSE [Concomitant]
     Indication: DIABETES MELLITUS
     Dosage: 2.5 UNK, DAILY
     Dates: start: 200611
  4. AVANDIA [Concomitant]
     Indication: DIABETES MELLITUS
     Dosage: 1 UKN, DAILY
     Dates: start: 201210
  5. PEMIX [Concomitant]
     Indication: PROPHYLAXIS
     Dosage: 1 UNK, DAILY
     Dates: start: 201303
  6. CINITAPRIDE [Concomitant]
     Indication: PROPHYLAXIS
     Dosage: 1 UKN, DAILY
     Dates: start: 201303

REACTIONS (3)
  - Convulsion [Not Recovered/Not Resolved]
  - Speech disorder [Not Recovered/Not Resolved]
  - Inappropriate schedule of drug administration [Not Recovered/Not Resolved]
